FAERS Safety Report 7402713-6 (Version None)
Quarter: 2011Q2

REPORT INFORMATION
  Report Type: 
  Country: None (occurrence: None)
  Receive Date: 20110408
  Receipt Date: 20110329
  Transmission Date: 20111010
  Serious: Yes (Life-Threatening, Hospitalization)
  Sender: FDA-Public Use
  Company Number: ES-SANOFI-AVENTIS-2011SA008930

PATIENT
  Age: 67 Year
  Sex: Male

DRUGS (4)
  1. XELODA [Suspect]
     Indication: COLON CANCER STAGE III
     Route: 048
     Dates: start: 20110113, end: 20110121
  2. ASPIRIN [Concomitant]
     Dates: start: 20070101
  3. OXALIPLATIN [Suspect]
     Indication: COLON CANCER STAGE III
     Route: 041
     Dates: start: 20110113, end: 20110113
  4. AMLODIPINE BESILATE [Concomitant]
     Dates: start: 20080101

REACTIONS (5)
  - MULTI-ORGAN FAILURE [None]
  - TOXICITY TO VARIOUS AGENTS [None]
  - ENTERITIS [None]
  - SEPTIC SHOCK [None]
  - ATELECTASIS [None]
